FAERS Safety Report 24321128 (Version 3)
Quarter: 2025Q3

REPORT INFORMATION
  Report Type: Spontaneous
  Country: US (occurrence: US)
  Receive Date: 20240916
  Receipt Date: 20250802
  Transmission Date: 20251021
  Serious: Yes (Other)
  Sender: ALEXION PHARMACEUTICALS
  Company Number: 2024A204046

PATIENT
  Age: 81 Year
  Sex: Female
  Weight: 83.915 kg

DRUGS (1)
  1. FARXIGA [Suspect]
     Active Substance: DAPAGLIFLOZIN PROPANEDIOL
     Indication: Renal disorder
     Dates: start: 20240814, end: 20240829

REACTIONS (4)
  - Oedema peripheral [Not Recovered/Not Resolved]
  - Heart rate increased [Recovering/Resolving]
  - Chest discomfort [Recovered/Resolved]
  - Dizziness [Recovered/Resolved]

NARRATIVE: CASE EVENT DATE: 20240827
